FAERS Safety Report 11332391 (Version 1)
Quarter: 2015Q3

REPORT INFORMATION
  Report Type: Spontaneous
  Country: US (occurrence: US)
  Receive Date: 20150803
  Receipt Date: 20150803
  Transmission Date: 20151125
  Serious: No
  Sender: FDA-Public Use
  Company Number: US-ELI_LILLY_AND_COMPANY-US200809002451

PATIENT
  Age: 29 Year
  Sex: Male

DRUGS (1)
  1. ZYPREXA [Suspect]
     Active Substance: OLANZAPINE
     Dosage: 5 MG, UNK
     Dates: start: 20080909

REACTIONS (4)
  - Adverse drug reaction [Recovered/Resolved]
  - Flatulence [Recovered/Resolved]
  - Discomfort [Recovered/Resolved]
  - Dyspepsia [Recovered/Resolved]

NARRATIVE: CASE EVENT DATE: 20080909
